FAERS Safety Report 20721179 (Version 3)
Quarter: 2022Q3

REPORT INFORMATION
  Report Type: Spontaneous
  Country: US (occurrence: US)
  Receive Date: 20220418
  Receipt Date: 20220915
  Transmission Date: 20221026
  Serious: No
  Sender: FDA-Public Use
  Company Number: US-KARYOPHARM-2022KPT000292

PATIENT

DRUGS (14)
  1. XPOVIO [Suspect]
     Active Substance: SELINEXOR
     Indication: Astrocytoma
     Dosage: 80 MG, WEEKLY
     Route: 048
     Dates: start: 20220308, end: 2022
  2. XPOVIO [Suspect]
     Active Substance: SELINEXOR
     Dosage: 60 MG, WEEKLY
     Route: 048
     Dates: start: 2022, end: 20220818
  3. AVASTIN [Concomitant]
     Active Substance: BEVACIZUMAB
  4. BACTRIM [Concomitant]
     Active Substance: SULFAMETHOXAZOLE\TRIMETHOPRIM
  5. DEXAMETHASONE [Concomitant]
     Active Substance: DEXAMETHASONE
  6. DRONABINOL [Concomitant]
     Active Substance: DRONABINOL
  7. EMEND [Concomitant]
     Active Substance: APREPITANT
  8. ESCITALOPRAM [Concomitant]
     Active Substance: ESCITALOPRAM OXALATE
  9. GLEOSTINE [Concomitant]
     Active Substance: LOMUSTINE
  10. ZOFRAN [Concomitant]
     Active Substance: ONDANSETRON HYDROCHLORIDE
  11. PROCHLORPERAZINE [Concomitant]
     Active Substance: PROCHLORPERAZINE
  12. KEPPRA [Concomitant]
     Active Substance: LEVETIRACETAM
  13. MODAFINIL [Concomitant]
     Active Substance: MODAFINIL
  14. LOTRISONE [Concomitant]
     Active Substance: BETAMETHASONE DIPROPIONATE\CLOTRIMAZOLE

REACTIONS (5)
  - Abdominal pain upper [Unknown]
  - Constipation [Unknown]
  - Fatigue [Unknown]
  - Asthenia [Unknown]
  - Off label use [Unknown]

NARRATIVE: CASE EVENT DATE: 20220308
